FAERS Safety Report 20807608 (Version 1)
Quarter: 2022Q2

REPORT INFORMATION
  Report Type: Other
  Country: SA (occurrence: None)
  Receive Date: 20220510
  Receipt Date: 20220510
  Transmission Date: 20220721
  Serious: Yes (Other)
  Sender: FDA-Public Use
  Company Number: SA-ROCHE-3094354

PATIENT

DRUGS (1)
  1. RITUXIMAB [Suspect]
     Active Substance: RITUXIMAB
     Indication: Multiple sclerosis
     Dosage: THEN THE DOSE WAS RE-ADMINISTERED AFTER 2 WEEKS. THE SAME RTX DOSE WAS REPEATED AFTER 6 MONTHS IN TW
     Route: 042

REACTIONS (2)
  - Hepatitis [Unknown]
  - Off label use [Unknown]
